FAERS Safety Report 13424617 (Version 1)
Quarter: 2017Q2

REPORT INFORMATION
  Report Type: Spontaneous
  Country: SE (occurrence: SE)
  Receive Date: 20170410
  Receipt Date: 20170410
  Transmission Date: 20170830
  Serious: Yes (Other)
  Sender: FDA-Public Use
  Company Number: SE-ELI_LILLY_AND_COMPANY-SE201704001301

PATIENT
  Age: 47 Year
  Sex: Female

DRUGS (2)
  1. ZYPADHERA [Suspect]
     Active Substance: OLANZAPINE PAMOATE
     Dosage: 405 MG, UNKNOWN
     Route: 030
     Dates: start: 20170316
  2. ZYPADHERA [Suspect]
     Active Substance: OLANZAPINE PAMOATE
     Indication: SCHIZOAFFECTIVE DISORDER
     Dosage: 210 MG, UNKNOWN
     Route: 030
     Dates: start: 20170316

REACTIONS (2)
  - Discomfort [Unknown]
  - Overdose [Unknown]

NARRATIVE: CASE EVENT DATE: 20170316
